FAERS Safety Report 18124985 (Version 1)
Quarter: 2020Q3

REPORT INFORMATION
  Report Type: Report from Study
  Country: US (occurrence: US)
  Receive Date: 20200807
  Receipt Date: 20200807
  Transmission Date: 20201103
  Serious: Yes (Hospitalization)
  Sender: FDA-Public Use
  Company Number: US-EXELIXIS-CABO-20031201

PATIENT
  Sex: Female

DRUGS (1)
  1. CABOMETYX [Suspect]
     Active Substance: CABOZANTINIB S-MALATE
     Indication: SALIVARY GLAND CANCER
     Dosage: 60 MG, QD
     Dates: start: 20200617, end: 20200719

REACTIONS (9)
  - Decreased activity [Unknown]
  - Oral pain [Unknown]
  - Off label use [Unknown]
  - Dehydration [Unknown]
  - Somnolence [Unknown]
  - Pain in extremity [Unknown]
  - Trismus [Unknown]
  - Pneumonia [Unknown]
  - Oropharyngeal pain [Unknown]
